FAERS Safety Report 6421745-8 (Version None)
Quarter: 2009Q4

REPORT INFORMATION
  Report Type: 
  Country: None (occurrence: None)
  Receive Date: 20091030
  Receipt Date: 20091013
  Transmission Date: 20100525
  Serious: Yes (Hospitalization)
  Sender: FDA-Public Use
  Company Number: NL-NOVOPROD-292741

PATIENT
  Sex: Male

DRUGS (1)
  1. NOVORAPID PENFILL [Suspect]
     Indication: DIABETES MELLITUS
     Dosage: 24 UNITS IN THE MORNING AND 26 UNITS IN THE EVENING
     Route: 058

REACTIONS (2)
  - ADVERSE EVENT [None]
  - DEVICE MALFUNCTION [None]
